FAERS Safety Report 10157751 (Version 3)
Quarter: 2014Q2

REPORT INFORMATION
  Report Type: Report from Study
  Country: US (occurrence: US)
  Receive Date: 20140507
  Receipt Date: 20140604
  Transmission Date: 20141212
  Serious: Yes (Hospitalization)
  Sender: FDA-Public Use
  Company Number: US-ACTELION-A-US2014-96605

PATIENT
  Age: 77 Year
  Sex: Female

DRUGS (2)
  1. MACITENTAN [Suspect]
     Indication: PULMONARY ARTERIAL HYPERTENSION
     Dosage: 10 MG, QD
     Route: 048
     Dates: start: 20140129
  2. WARFARIN [Concomitant]

REACTIONS (4)
  - Implantable defibrillator insertion [Recovering/Resolving]
  - Traumatic lung injury [Recovering/Resolving]
  - Cough [Recovering/Resolving]
  - Heart rate abnormal [Recovering/Resolving]
